FAERS Safety Report 5478195-0 (Version None)
Quarter: 2007Q4

REPORT INFORMATION
  Report Type: 
  Country: None (occurrence: None)
  Receive Date: 20071005
  Receipt Date: 20070926
  Transmission Date: 20080405
  Serious: Yes (Death, Hospitalization)
  Sender: FDA-Public Use
  Company Number: US-AVENTIS-200718978GDDC

PATIENT
  Age: 75 Year
  Sex: Male

DRUGS (5)
  1. FLUOROURACIL [Suspect]
     Dosage: DOSE: IV BOLUS WEEKLY FOR 3 DOSES THEN OFF WEEK 4
     Route: 042
  2. OXYCONTIN [Concomitant]
  3. WARFARIN SODIUM [Concomitant]
  4. ALPRAZOLAM [Concomitant]
  5. ZOLPIDEM TARTRATE [Concomitant]

REACTIONS (3)
  - GASTROINTESTINAL HAEMORRHAGE [None]
  - MENTAL STATUS CHANGES [None]
  - PANCYTOPENIA [None]
